FAERS Safety Report 5352093-5 (Version None)
Quarter: 2007Q2

REPORT INFORMATION
  Report Type: 
  Country: None (occurrence: None)
  Receive Date: 20070606
  Receipt Date: 20070529
  Transmission Date: 20071010
  Serious: Yes (Hospitalization, Other)
  Sender: FDA-Public Use
  Company Number: 16685

PATIENT
  Age: 45 Year
  Sex: Female

DRUGS (6)
  1. VINCRISTINE [Suspect]
     Indication: LYMPHOPROLIFERATIVE DISORDER
     Dosage: 1.4 MG Q21DAYS UNK
  2. DOXORUBICIN HCL [Suspect]
     Indication: LYMPHOPROLIFERATIVE DISORDER
     Dosage: 50 MG Q21DAYS UNK
  3. CYCLOPHOSPHAMIDE [Suspect]
     Indication: LYMPHOPROLIFERATIVE DISORDER
     Dosage: 750 MG Q21DAYS UNK
  4. PREDNISOLONE [Suspect]
     Indication: LYMPHOPROLIFERATIVE DISORDER
     Dosage: 100 MG Q21DAYS UNK
  5. NEUPOGEN [Concomitant]
  6. ANTIBIOTICS [Concomitant]

REACTIONS (5)
  - DISEASE PROGRESSION [None]
  - DRUG TOXICITY [None]
  - INFECTION [None]
  - LYMPHOPROLIFERATIVE DISORDER [None]
  - REFUSAL OF TREATMENT BY PATIENT [None]
